FAERS Safety Report 9001396 (Version 5)
Quarter: 2013Q2

REPORT INFORMATION
  Report Type: Report from Study
  Country: US (occurrence: US)
  Receive Date: 20130107
  Receipt Date: 20130401
  Transmission Date: 20140414
  Serious: Yes (Hospitalization)
  Sender: FDA-Public Use
  Company Number: US-VERTEX PHARMACEUTICALS INC.-2013-000240

PATIENT
  Age: 60 Year
  Sex: Female
  Weight: 72 kg

DRUGS (9)
  1. VX-950 (TELAPREVIR) [Suspect]
     Indication: HEPATITIS C
     Dosage: 750 MG, TID
     Route: 048
     Dates: start: 20121007, end: 20121231
  2. PEGASYS [Suspect]
     Indication: HEPATITIS C
     Dosage: 180 ?G, QW
     Route: 058
     Dates: start: 20121007, end: 20130315
  3. PEGASYS [Suspect]
     Dosage: 90 ?G, QW
  4. RIBAVIRIN [Suspect]
     Indication: HEPATITIS C
     Dosage: UNK
     Route: 048
     Dates: start: 20121007, end: 20130321
  5. RIBAVIRIN [Suspect]
     Dosage: 800 MG, QD
     Route: 048
  6. RIBAVIRIN [Suspect]
     Dosage: 400MG AM, 200MG PM, QD
     Route: 048
  7. CLONAZEPAM [Concomitant]
     Dosage: 10 MG, UNK
  8. DILAUDID [Concomitant]
     Dosage: 10 MG, UNK
  9. LEVOTHYROXINE [Concomitant]

REACTIONS (11)
  - Anaemia [Recovered/Resolved]
  - Depression [Not Recovered/Not Resolved]
  - White blood cell count decreased [Not Recovered/Not Resolved]
  - Hallucination [Not Recovered/Not Resolved]
  - Amnesia [Not Recovered/Not Resolved]
  - Confusional state [Not Recovered/Not Resolved]
  - Disturbance in attention [Not Recovered/Not Resolved]
  - Swelling [Not Recovered/Not Resolved]
  - Dandruff [Recovered/Resolved]
  - Rash pruritic [Not Recovered/Not Resolved]
  - Fungal skin infection [Recovered/Resolved]
